FAERS Safety Report 18582744 (Version 1)
Quarter: 2020Q4

REPORT INFORMATION
  Report Type: Report from Study
  Country: CA (occurrence: CA)
  Receive Date: 20201205
  Receipt Date: 20201205
  Transmission Date: 20210114
  Serious: Yes (Hospitalization)
  Sender: FDA-Public Use
  Company Number: CA-UCBSA-2020049153

PATIENT
  Sex: Female

DRUGS (1)
  1. CERTOLIZUMAB PEGOL AUTOCLICKS [Suspect]
     Active Substance: CERTOLIZUMAB PEGOL
     Indication: RHEUMATOID ARTHRITIS
     Dosage: 200 MILLIGRAM, EV 2 WEEKS(QOW)
     Route: 058

REACTIONS (1)
  - Gastric ulcer [Unknown]
